FAERS Safety Report 22356671 (Version 2)
Quarter: 2023Q2

REPORT INFORMATION
  Report Type: Report from Study
  Country: US (occurrence: US)
  Receive Date: 20230523
  Receipt Date: 20230530
  Transmission Date: 20230722
  Serious: Yes (Hospitalization, Other)
  Sender: FDA-Public Use
  Company Number: US-PFIZER INC-US-GBT-018980

PATIENT
  Age: 24 Year
  Sex: Male

DRUGS (17)
  1. VOXELOTOR [Suspect]
     Active Substance: VOXELOTOR
     Indication: Anaemia
     Dosage: 1500 MG, 1X/DAY
     Route: 048
     Dates: start: 20200109, end: 2021
  2. VOXELOTOR [Suspect]
     Active Substance: VOXELOTOR
     Dosage: UNK
     Dates: start: 20210205, end: 20210428
  3. VOXELOTOR [Suspect]
     Active Substance: VOXELOTOR
     Dosage: UNK
     Dates: start: 20210507, end: 20211201
  4. VOXELOTOR [Suspect]
     Active Substance: VOXELOTOR
     Dosage: UNK
     Dates: start: 20211205
  5. HYDROXYUREA [Concomitant]
     Active Substance: HYDROXYUREA
     Indication: Sickle cell disease
     Dosage: 1500 MG, 1X/DAY
     Route: 048
     Dates: start: 20160926
  6. BUTRANS [Concomitant]
     Active Substance: BUPRENORPHINE
     Indication: Sickle cell disease
     Dosage: APPLY 1 PATCH EVERY WEEK
     Route: 062
     Dates: start: 20220629
  7. MS CONTIN [Concomitant]
     Active Substance: MORPHINE SULFATE
     Indication: Sickle cell disease
     Dosage: 15 MG, 2X/DAY
     Route: 048
     Dates: start: 20180831, end: 20191213
  8. MS CONTIN [Concomitant]
     Active Substance: MORPHINE SULFATE
     Dosage: 30 MG, 2X/DAY
     Route: 048
     Dates: start: 20191213, end: 20220520
  9. MS CONTIN [Concomitant]
     Active Substance: MORPHINE SULFATE
     Dosage: 45 MG, 2X/DAY
     Route: 048
     Dates: start: 20220520, end: 20220629
  10. GABAPENTIN [Concomitant]
     Active Substance: GABAPENTIN
     Indication: Sickle cell disease
     Dosage: 800 MG, 3X/DAY
     Route: 048
     Dates: start: 20211220
  11. GLUTAMINE [ALANYL GLUTAMINE] [Concomitant]
     Indication: Sickle cell disease
     Dosage: 10 G, 2X/DAY
     Route: 048
     Dates: start: 20190603
  12. DILAUDID [Concomitant]
     Active Substance: HYDROMORPHONE HYDROCHLORIDE
     Indication: Sickle cell disease
     Dosage: 4 MG, EVERY 4 HRS
     Route: 048
     Dates: start: 20220401, end: 20220507
  13. OXYCODONE HYDROCHLORIDE [Concomitant]
     Active Substance: OXYCODONE HYDROCHLORIDE
     Indication: Sickle cell disease
     Dosage: 10 MG (EVERY 4 HOUR PRN)
     Route: 048
     Dates: start: 20160926, end: 20201106
  14. OXYCODONE HYDROCHLORIDE [Concomitant]
     Active Substance: OXYCODONE HYDROCHLORIDE
     Dosage: 15 MG  (EVERY 4 HOUR PRN)
     Route: 048
     Dates: start: 20201106, end: 20211220
  15. OXYCODONE HYDROCHLORIDE [Concomitant]
     Active Substance: OXYCODONE HYDROCHLORIDE
     Dosage: 30 MG  (EVERY 4 HOUR PRN)
     Route: 048
     Dates: start: 20211220
  16. FOLIC ACID [Concomitant]
     Active Substance: FOLIC ACID
     Indication: Sickle cell disease
     Dosage: 1 MG, 1X/DAY
     Route: 048
  17. VITAMIN D2 [Concomitant]
     Active Substance: ERGOCALCIFEROL
     Indication: Vitamin D deficiency
     Dosage: 50000 IU (EVERY 14 DAYS)
     Route: 048

REACTIONS (2)
  - Acute chest syndrome [Recovered/Resolved]
  - Sickle cell anaemia with crisis [Recovered/Resolved]

NARRATIVE: CASE EVENT DATE: 20220104
